FAERS Safety Report 21598078 (Version 1)
Quarter: 2022Q4

REPORT INFORMATION
  Report Type: Spontaneous
  Country: US (occurrence: US)
  Receive Date: 20221115
  Receipt Date: 20221115
  Transmission Date: 20230113
  Serious: Yes (Hospitalization, Other)
  Sender: FDA-Public Use
  Company Number: US-002147023-NVSC2022US255310

PATIENT
  Age: 63 Year
  Sex: Male

DRUGS (2)
  1. EVEROLIMUS [Suspect]
     Active Substance: EVEROLIMUS
     Indication: Renal cancer
     Dosage: UNK
     Route: 065
  2. LENVIMA [Suspect]
     Active Substance: LENVATINIB
     Indication: Renal cancer
     Dosage: 14 MG, QD
     Route: 048
     Dates: start: 202210

REACTIONS (9)
  - Loss of consciousness [Unknown]
  - Sepsis [Unknown]
  - Hypotension [Unknown]
  - Head injury [Unknown]
  - Movement disorder [Unknown]
  - Feeling abnormal [Unknown]
  - Nocturia [Unknown]
  - Adrenal disorder [Recovering/Resolving]
  - Vomiting [Unknown]

NARRATIVE: CASE EVENT DATE: 20221001
